FAERS Safety Report 14007201 (Version 1)
Quarter: 2017Q3

REPORT INFORMATION
  Report Type: Spontaneous
  Country: US (occurrence: US)
  Receive Date: 20170924
  Receipt Date: 20170924
  Transmission Date: 20171128
  Serious: Yes (Death)
  Sender: FDA-Public Use
  Company Number: None

PATIENT
  Sex: Female
  Weight: 63 kg

DRUGS (3)
  1. OMEGA KRILL OIL SUPPLEMENTS [Concomitant]
  2. ADDERALL [Suspect]
     Active Substance: AMPHETAMINE ASPARTATE\AMPHETAMINE SULFATE\DEXTROAMPHETAMINE SACCHARATE\DEXTROAMPHETAMINE SULFATE
     Indication: ATTENTION DEFICIT/HYPERACTIVITY DISORDER
  3. CHEWABLE VITAMINS [Concomitant]

REACTIONS (5)
  - Aggression [None]
  - Anger [None]
  - Abnormal behaviour [None]
  - Asphyxia [None]
  - Completed suicide [None]

NARRATIVE: CASE EVENT DATE: 20161002
